FAERS Safety Report 8802911 (Version 1)
Quarter: 2012Q4

REPORT INFORMATION
  Report Type: Report from Study
  Country: JP (occurrence: JP)
  Receive Date: 20120924
  Receipt Date: 20120924
  Transmission Date: 20130627
  Serious: Yes (Hospitalization)
  Sender: FDA-Public Use
  Company Number: JP-VERTEX PHARMACEUTICAL INC.-2012-021560

PATIENT
  Age: 67 Year
  Sex: Female

DRUGS (5)
  1. VX-950 [Suspect]
     Indication: HEPATITIS C
     Dosage: 1500 mg, qd
     Route: 048
     Dates: start: 20120613, end: 20120815
  2. PEGINTERFERON ALFA-2B [Suspect]
     Indication: HEPATITIS C
     Dosage: 1.5 ?g/kg, UNK
     Route: 058
  3. PEGINTERFERON ALFA-2B [Suspect]
     Dosage: 1.0 ?g/kg, UNK
     Route: 058
  4. REBETOL [Concomitant]
     Dosage: 400 mg, qd
     Route: 048
  5. REBETOL [Concomitant]
     Dosage: 200 mg, qd
     Route: 048
     Dates: end: 20120815

REACTIONS (1)
  - Decreased appetite [Recovered/Resolved]
